FAERS Safety Report 13227300 (Version 1)
Quarter: 2017Q1

REPORT INFORMATION
  Report Type: Spontaneous
  Country: US (occurrence: US)
  Receive Date: 20170213
  Receipt Date: 20170213
  Transmission Date: 20170428
  Serious: Yes (Hospitalization)
  Sender: FDA-Public Use
  Company Number: US-PFIZER INC-2017024989

PATIENT
  Age: 83 Year
  Sex: Male

DRUGS (2)
  1. ROBITUSSIN MAXIMUM STRENGTH COUGH PLUS CHEST CONGESTION DM [Suspect]
     Active Substance: DEXTROMETHORPHAN HYDROBROMIDE\GUAIFENESIN
     Indication: CHEST PAIN
  2. ROBITUSSIN MAXIMUM STRENGTH COUGH PLUS CHEST CONGESTION DM [Suspect]
     Active Substance: DEXTROMETHORPHAN HYDROBROMIDE\GUAIFENESIN
     Indication: COUGH
     Dosage: 20 MG, SINGLE
     Dates: start: 20170118, end: 20170118

REACTIONS (4)
  - Foreign body [Recovered/Resolved]
  - Product difficult to swallow [Recovered/Resolved]
  - Cough [Recovered/Resolved]
  - Dysphagia [Recovered/Resolved]

NARRATIVE: CASE EVENT DATE: 20170118
